FAERS Safety Report 6541939-0 (Version None)
Quarter: 2010Q1

REPORT INFORMATION
  Report Type: 
  Country: None (occurrence: None)
  Receive Date: 20100119
  Receipt Date: 20091026
  Transmission Date: 20100710
  Serious: Yes (Other)
  Sender: FDA-Public Use
  Company Number: US-SANOFI-AVENTIS-200917786US

PATIENT
  Age: 57 Year
  Sex: Female

DRUGS (5)
  1. OPTICLICK [Suspect]
  2. INSULIN GLULISINE [Suspect]
     Dosage: DOSE:78 UNIT(S)
  3. INSULIN GLULISINE [Suspect]
     Dosage: DOSE AS USED: UNK
  4. INSULIN GLARGINE [Suspect]
     Dosage: DOSE:56 UNIT(S)
     Route: 058
     Dates: start: 20050101
  5. NO MENTION OF CONCOMITANT MEDICATION [Concomitant]

REACTIONS (3)
  - DEVICE MALFUNCTION [None]
  - HYPOGLYCAEMIA [None]
  - WRONG DRUG ADMINISTERED [None]
